FAERS Safety Report 15602456 (Version 1)
Quarter: 2018Q4

REPORT INFORMATION
  Report Type: Spontaneous
  Country: US (occurrence: US)
  Receive Date: 20181109
  Receipt Date: 20181109
  Transmission Date: 20190205
  Serious: No
  Sender: FDA-Public Use
  Company Number: US-UPSHER-SMITH LABORATORIES, LLC-2017USL00352

PATIENT
  Sex: Male

DRUGS (5)
  1. JANTOVEN [Suspect]
     Active Substance: WARFARIN SODIUM
     Dosage: 2.5 MG, 4X/WEEK (TUESDAY THROUGH FRIDAY)
     Route: 048
     Dates: start: 201707, end: 201712
  2. JANTOVEN [Suspect]
     Active Substance: WARFARIN SODIUM
     Dosage: 5 MG, 3X/WEEK (SATURDAY THROUGH MONDAY)
     Route: 048
     Dates: start: 201707, end: 201712
  3. JANTOVEN [Suspect]
     Active Substance: WARFARIN SODIUM
     Indication: ARRHYTHMIA PROPHYLAXIS
     Dosage: 2.5 MG, 5X/WEEK (MONDAY THROUGH FRIDAY)
     Route: 048
     Dates: start: 201707, end: 201712
  4. TESTOSTERONE. [Suspect]
     Active Substance: TESTOSTERONE
     Dosage: UNK
     Dates: end: 2017
  5. JANTOVEN [Suspect]
     Active Substance: WARFARIN SODIUM
     Dosage: 5 MG, 2X/WEEK (SUNDAY AND SATURDAY)
     Route: 048
     Dates: start: 201707, end: 201712

REACTIONS (3)
  - Drug ineffective [Recovered/Resolved]
  - International normalised ratio decreased [Not Recovered/Not Resolved]
  - International normalised ratio increased [Recovered/Resolved]

NARRATIVE: CASE EVENT DATE: 201707
